FAERS Safety Report 24458698 (Version 1)
Quarter: 2024Q4

REPORT INFORMATION
  Report Type: Spontaneous
  Country: US (occurrence: US)
  Receive Date: 20241018
  Receipt Date: 20241018
  Transmission Date: 20250115
  Serious: No
  Sender: DERMAVANT SCIENCES, INC.
  Company Number: US-Dermavant-001293

PATIENT
  Age: 36 Year
  Sex: Female

DRUGS (10)
  1. VTAMA [Suspect]
     Active Substance: TAPINAROF
     Indication: Psoriasis
     Route: 061
     Dates: start: 202408
  2. WELLBUTRIN XL [Concomitant]
     Active Substance: BUPROPION HYDROCHLORIDE
  3. ADDERALL [Concomitant]
     Active Substance: AMPHETAMINE ASPARTATE\AMPHETAMINE SULFATE\DEXTROAMPHETAMINE SACCHARATE\DEXTROAMPHETAMINE SULFATE
  4. KLONOPIN [Concomitant]
     Active Substance: CLONAZEPAM
  5. ZONISAMIDE [Concomitant]
     Active Substance: ZONISAMIDE
  6. VITAMIN D [Concomitant]
     Active Substance: VITAMIN D NOS
  7. Omega -3 [Concomitant]
  8. SAPHRIS [Concomitant]
     Active Substance: ASENAPINE MALEATE
  9. HALOBETASOL [Concomitant]
     Active Substance: HALOBETASOL
  10. TRIAMCINOLONE [Concomitant]
     Active Substance: TRIAMCINOLONE

REACTIONS (8)
  - Skin burning sensation [Recovering/Resolving]
  - Pruritus [Recovering/Resolving]
  - Pain [Unknown]
  - Joint swelling [Unknown]
  - Insomnia [Unknown]
  - Skin fissures [Unknown]
  - Rash macular [Unknown]
  - Sleep disorder [Unknown]
